FAERS Safety Report 17276005 (Version 1)
Quarter: 2020Q1

REPORT INFORMATION
  Report Type: Spontaneous
  Country: FR (occurrence: FR)
  Receive Date: 20200116
  Receipt Date: 20200116
  Transmission Date: 20200409
  Serious: Yes (Other)
  Sender: FDA-Public Use
  Company Number: FR-SA-2020SA010814

PATIENT
  Age: 75 Year
  Sex: Male

DRUGS (1)
  1. ZALTRAP [Suspect]
     Active Substance: ZIV-AFLIBERCEPT
     Dosage: UNK UNK, UNK
     Route: 065

REACTIONS (4)
  - Fall [Unknown]
  - Syncope [Unknown]
  - Cerebral haemorrhage [Unknown]
  - Hemiplegia [Unknown]
